FAERS Safety Report 8920507 (Version 5)
Quarter: 2013Q2

REPORT INFORMATION
  Report Type: Spontaneous
  Country: AR (occurrence: AR)
  Receive Date: 20121121
  Receipt Date: 20130403
  Transmission Date: 20140414
  Serious: Yes (Other)
  Sender: FDA-Public Use
  Company Number: AR-ROCHE-1155469

PATIENT
  Age: 70 Year
  Sex: Female

DRUGS (2)
  1. XOLAIR [Suspect]
     Indication: ASTHMA
     Dosage: 06//2012 START DATE
     Route: 065
     Dates: end: 201204
  2. XOLAIR [Suspect]
     Indication: HYPERSENSITIVITY
     Route: 065
     Dates: start: 201206

REACTIONS (20)
  - Influenza [Recovering/Resolving]
  - Aphonia [Recovered/Resolved]
  - Pyrexia [Recovered/Resolved]
  - Increased upper airway secretion [Recovering/Resolving]
  - Feeling abnormal [Recovering/Resolving]
  - Pleuritic pain [Recovering/Resolving]
  - Fall [Unknown]
  - Haematoma [Recovering/Resolving]
  - Weight decreased [Recovering/Resolving]
  - Feeling hot [Recovering/Resolving]
  - Hypersensitivity [Not Recovered/Not Resolved]
  - Bronchiectasis [Not Recovered/Not Resolved]
  - Visual acuity reduced [Not Recovered/Not Resolved]
  - Fear [Not Recovered/Not Resolved]
  - Dysphonia [Not Recovered/Not Resolved]
  - Oropharyngeal pain [Not Recovered/Not Resolved]
  - Lacrimation increased [Not Recovered/Not Resolved]
  - Accident [Unknown]
  - Vomiting [Recovering/Resolving]
  - Infection [Recovered/Resolved]
